FAERS Safety Report 23857599 (Version 1)
Quarter: 2024Q2

REPORT INFORMATION
  Report Type: Report from Study
  Country: US (occurrence: US)
  Receive Date: 20240515
  Receipt Date: 20240515
  Transmission Date: 20240715
  Serious: Yes (Other)
  Sender: FDA-Public Use
  Company Number: US-AMGEN-USASL2024090324

PATIENT
  Age: 62 Year
  Sex: Male

DRUGS (14)
  1. MVASI [Suspect]
     Active Substance: BEVACIZUMAB-AWWB
     Indication: Product used for unknown indication
     Dosage: 1100 MILLIGRAM IN SODIUM CHLORIDE 0.9 PERCENT, WITH OVERFILL TUBING 168 ML (TOTAL VOLUME) CHEMO INFU
     Route: 065
  2. SODIUM CHLORIDE [Concomitant]
     Active Substance: SODIUM CHLORIDE
  3. COVID-19 vaccine [Concomitant]
  4. TETANUS TOXOID, REDUCED DIPHTHERIA TOXOID AND ACELLULAR PERTUSSIS VACC [Concomitant]
     Active Substance: TETANUS TOXOID, REDUCED DIPHTHERIA TOXOID AND ACELLULAR PERTUSSIS VACCINE ADSORBED, TDAP
  5. ATORVASTATIN [Concomitant]
     Active Substance: ATORVASTATIN
  6. CHLORTHALIDONE [Concomitant]
     Active Substance: CHLORTHALIDONE
  7. DEXAMETHASONE [Concomitant]
     Active Substance: DEXAMETHASONE
  8. ESCITALOPRAM [Concomitant]
     Active Substance: ESCITALOPRAM OXALATE
  9. FAMOTIDINE [Concomitant]
     Active Substance: FAMOTIDINE
  10. LACOSAMIDE [Concomitant]
     Active Substance: LACOSAMIDE
  11. LEVETIRACETAM [Concomitant]
     Active Substance: LEVETIRACETAM
  12. NIFEDIPINE [Concomitant]
     Active Substance: NIFEDIPINE
  13. SILDENAFIL CITRATE [Concomitant]
     Active Substance: SILDENAFIL CITRATE
  14. VITAMIN D3 [Concomitant]
     Active Substance: CHOLECALCIFEROL

REACTIONS (18)
  - Cerebrovascular accident [Unknown]
  - Brain radiation necrosis [Unknown]
  - Seizure [Unknown]
  - Hyponatraemia [Unknown]
  - Anaemia [Unknown]
  - Constipation [Unknown]
  - Emphysema [Unknown]
  - Essential hypertension [Unknown]
  - Arterial stenosis [Unknown]
  - Type V hyperlipidaemia [Unknown]
  - Myofascial pain syndrome [Unknown]
  - Intervertebral disc degeneration [Unknown]
  - Spinal osteoarthritis [Unknown]
  - Obesity [Unknown]
  - Elective surgery [Unknown]
  - Organic erectile dysfunction [Unknown]
  - Occupational exposure to air contaminants [Unknown]
  - Gastrooesophageal reflux disease [Unknown]
